FAERS Safety Report 22122624 (Version 3)
Quarter: 2025Q4

REPORT INFORMATION
  Report Type: Report from Study
  Country: US (occurrence: US)
  Receive Date: 20230321
  Receipt Date: 20251203
  Transmission Date: 20260118
  Serious: Yes (Other)
  Sender: INCYTE
  Company Number: US-INCYTE CORPORATION-2023IN002288

PATIENT
  Age: 76 Year

DRUGS (4)
  1. JAKAFI [Suspect]
     Active Substance: RUXOLITINIB
     Indication: Polycythaemia vera
     Dosage: 30 MILLIGRAM, QD
  2. JAKAFI [Suspect]
     Active Substance: RUXOLITINIB
     Indication: Thrombocytosis
     Dosage: 10MG, 2 TABLETS EVERY MORNING, 1 TABLET EVERY EVENING
  3. JAKAFI [Suspect]
     Active Substance: RUXOLITINIB
     Dosage: TAKE 2 TABLETS (20MG) EVERY MORNING AND 1 TABLET (10MG) EVERY EVENING
  4. HYDROXYUREA [Concomitant]
     Active Substance: HYDROXYUREA
     Indication: Product used for unknown indication
     Dosage: UNK
     Route: 065

REACTIONS (8)
  - Syncope [Unknown]
  - Pruritus [Unknown]
  - Paraesthesia [Unknown]
  - Neck pain [Unknown]
  - Dizziness [Unknown]
  - Headache [Unknown]
  - Product availability issue [Unknown]
  - Off label use [Unknown]
